FAERS Safety Report 9235972 (Version 4)
Quarter: 2018Q4

REPORT INFORMATION
  Report Type: Spontaneous
  Country: JP (occurrence: JP)
  Receive Date: 20130417
  Receipt Date: 20181002
  Transmission Date: 20190205
  Serious: Yes (Death, Hospitalization, Other)
  Sender: FDA-Public Use
  Company Number: PHHY2013JP036152

PATIENT
  Age: 69 Year
  Sex: Female
  Weight: 47 kg

DRUGS (8)
  1. LASIX [Concomitant]
     Active Substance: FUROSEMIDE
     Indication: OEDEMA
     Dosage: 20 MG, UNK
     Route: 042
     Dates: start: 20130130, end: 20130204
  2. GLIVEC [Suspect]
     Active Substance: IMATINIB MESYLATE
     Dosage: 300 MG, QD
     Route: 048
     Dates: start: 200408, end: 20130130
  3. GLIVEC [Suspect]
     Active Substance: IMATINIB MESYLATE
     Dosage: UNK
     Route: 048
     Dates: start: 20060808
  4. SOLDEM 3A [Concomitant]
     Active Substance: CARBOHYDRATES\POTASSIUM CHLORIDE\SODIUM CHLORIDE\SODIUM LACTATE
     Indication: PRODUCT USED FOR UNKNOWN INDICATION
     Dosage: 2000 ML, UNK
     Route: 041
     Dates: start: 20130130, end: 20130204
  5. FUTHAN [Concomitant]
     Active Substance: NAFAMOSTAT MESYLATE
     Indication: PROPHYLAXIS
     Dosage: 20 MG, UNK
     Route: 041
     Dates: start: 20130204
  6. GLIVEC [Suspect]
     Active Substance: IMATINIB MESYLATE
     Indication: GASTROINTESTINAL STROMAL TUMOUR
     Dosage: 400 MG, DAILY
     Route: 048
     Dates: start: 20040622
  7. URSO [Concomitant]
     Active Substance: URSODIOL
     Indication: HEPATIC FUNCTION ABNORMAL
     Dosage: 150 MG, UNK
     Route: 048
     Dates: start: 20130201, end: 20130203
  8. TIENAM [Concomitant]
     Active Substance: CILASTATIN SODIUM\IMIPENEM
     Indication: CHOLANGITIS
     Dosage: 1000 MG, UNK
     Route: 041
     Dates: start: 20130204

REACTIONS (30)
  - Biliary dilatation [Fatal]
  - Drug resistance [Unknown]
  - Hyperkalaemia [Fatal]
  - Agitation [Unknown]
  - Respiratory rate decreased [Unknown]
  - Pyrexia [Fatal]
  - Metastases to peritoneum [Fatal]
  - Neoplasm [Unknown]
  - Haemorrhage [Unknown]
  - Liver function test increased [Fatal]
  - Blood bilirubin increased [Fatal]
  - Haemolytic anaemia [Fatal]
  - Blood pressure increased [Unknown]
  - Heart rate decreased [Unknown]
  - Necrosis [Unknown]
  - Cholangitis [Fatal]
  - Gastrointestinal stromal tumour [Unknown]
  - Drug level decreased [Unknown]
  - Haemoglobin decreased [Fatal]
  - Gas gangrene [Fatal]
  - Decreased appetite [Recovering/Resolving]
  - Inflammation [Fatal]
  - Death [Fatal]
  - Cardiac arrest [Unknown]
  - Metastases to liver [Unknown]
  - Abdominal pain [Fatal]
  - Haemolysis [Fatal]
  - Clostridial infection [Fatal]
  - Sepsis [Fatal]
  - Malignant neoplasm progression [Unknown]

NARRATIVE: CASE EVENT DATE: 20060804
